FAERS Safety Report 16907784 (Version 7)
Quarter: 2022Q3

REPORT INFORMATION
  Report Type: Other
  Country: GB (occurrence: GB)
  Receive Date: 20191011
  Receipt Date: 20220704
  Transmission Date: 20221027
  Serious: Yes (Other)
  Sender: FDA-Public Use
  Company Number: GB-MACLEODS PHARMACEUTICALS US LTD-MAC2019020244

PATIENT

DRUGS (19)
  1. ESCITALOPRAM [Suspect]
     Active Substance: ESCITALOPRAM OXALATE
     Indication: Product used for unknown indication
     Dosage: 10 MILLIGRAM, QD, EACH MORNING
     Route: 048
  2. OLANZAPINE [Suspect]
     Active Substance: OLANZAPINE
     Indication: Product used for unknown indication
     Dosage: 5 MILLIGRAM, QD
     Route: 048
  3. OLANZAPINE [Suspect]
     Active Substance: OLANZAPINE
     Dosage: 10 MILLIGRAM, QD PRN
     Route: 048
  4. AZATHIOPRINE [Suspect]
     Active Substance: AZATHIOPRINE
     Indication: Colitis
     Dosage: 25 MILLIGRAM, QD MORNING, LUNCH AND TEA TIME (WITH OR JUST AFTER FOOD/MEAL)
     Route: 048
  5. AZATHIOPRINE [Suspect]
     Active Substance: AZATHIOPRINE
     Dosage: 75 MILLIGRAM, QD MORNING, LUNCH AND TEA TIME (WITH OR JUST AFTER FOOD/MEAL)
     Route: 048
  6. DIHYDROCODEINE BITARTRATE [Suspect]
     Active Substance: DIHYDROCODEINE BITARTRATE
     Indication: Pain
     Dosage: 60 MILLIGRAM, QD, QID, FOUR TIMES DAILY. WITH OR JUST AFTER FOOD/MEAL)
     Route: 048
  7. DIHYDROCODEINE BITARTRATE [Suspect]
     Active Substance: DIHYDROCODEINE BITARTRATE
     Dosage: 240 MILLIGRAM, QD (FOUR TIMES DAILY. WITH OR JUST AFTER FOOD/MEAL)
     Route: 048
  8. DIHYDROCODEINE BITARTRATE [Suspect]
     Active Substance: DIHYDROCODEINE BITARTRATE
     Dosage: 60 MILLIGRAM, PRN (DIHYDROCODEINE TARTRATE), ONCE A DAY/ FOUR TIMES DAILY. WITH OR JUST AFTER FOOD
     Route: 065
  9. DIHYDROCODEINE BITARTRATE [Suspect]
     Active Substance: DIHYDROCODEINE BITARTRATE
     Dosage: 8 DOSAGE FORM, QD, 2 DOSAGE FORM, AS NECESSARY,TWO TO BE TAKEN FOUR TIMES A DAY IF REQUIRED. RECEIVE
     Route: 048
  10. DIHYDROCODEINE BITARTRATE [Suspect]
     Active Substance: DIHYDROCODEINE BITARTRATE
     Dosage: 240 MILLIGRAM, QD (FOUR TIMES DAILY. WITH OR JUST AFTER FOOD/MEAL)
     Route: 048
  11. DIHYDROCODEINE BITARTRATE [Suspect]
     Active Substance: DIHYDROCODEINE BITARTRATE
     Dosage: 2 DOSAGE FORM, PRN (DIHYDROCODEINE TARTRATE) (2 DOSAGE FORM, AS NECESSARY,TWO TO BE TAKEN FOUR TIMES
     Route: 048
  12. FERROUS FUMARATE [Suspect]
     Active Substance: FERROUS FUMARATE
     Indication: Anaemia
     Dosage: 210 MILLIGRAM, QD MORNING AND NIGHT
     Route: 048
  13. FERROUS FUMARATE [Suspect]
     Active Substance: FERROUS FUMARATE
     Dosage: 840 MILLIGRAM, QD, MORNING AND NIGHT
     Route: 048
  14. FERROUS FUMARATE [Suspect]
     Active Substance: FERROUS FUMARATE
     Dosage: 420 MILLIGRAM, QD (MORNING AND NIGHT)
     Route: 048
  15. MIRTAZAPINE [Suspect]
     Active Substance: MIRTAZAPINE
     Indication: Product used for unknown indication
     Dosage: 30 MILLIGRAM, QD, AT NIGHT
     Route: 048
  16. FOLIC ACID [Suspect]
     Active Substance: FOLIC ACID
     Indication: Folate deficiency
     Dosage: 5 MILLIGRAM, QD, MORNING
     Route: 048
  17. FOLIC ACID [Suspect]
     Active Substance: FOLIC ACID
     Dosage: UNK
     Route: 065
  18. PROMETHAZINE [Suspect]
     Active Substance: PROMETHAZINE HYDROCHLORIDE
     Indication: Product used for unknown indication
     Dosage: 25 MILLIGRAM, QD, AT NIGHT
     Route: 048
  19. IRON [Suspect]
     Active Substance: IRON
     Indication: Anaemia
     Dosage: 210 MILLIGRAM, BID
     Route: 048

REACTIONS (3)
  - Autoscopy [Unknown]
  - Seizure [Unknown]
  - Overdose [Unknown]
